FAERS Safety Report 23737990 (Version 1)
Quarter: 2024Q2

REPORT INFORMATION
  Report Type: Spontaneous
  Country: CO (occurrence: CO)
  Receive Date: 20240412
  Receipt Date: 20240412
  Transmission Date: 20240716
  Serious: Yes (Disabling, Other)
  Sender: FDA-Public Use
  Company Number: CO-002147023-NVSC2023CO207487

PATIENT
  Age: 50 Year
  Sex: Male

DRUGS (3)
  1. OFATUMUMAB [Suspect]
     Active Substance: OFATUMUMAB
     Indication: Product used for unknown indication
     Dosage: 20 MG (EVERY 28 DAYS)
     Route: 058
     Dates: start: 202211, end: 20230811
  2. OFATUMUMAB [Suspect]
     Active Substance: OFATUMUMAB
     Dosage: UNK
     Route: 065
  3. CARBAMAZEPINE [Concomitant]
     Active Substance: CARBAMAZEPINE
     Indication: Product used for unknown indication
     Dosage: 200 MG, Q24H (EVERY 24 HOURS)
     Route: 048
     Dates: start: 202302

REACTIONS (8)
  - Skin depigmentation [Not Recovered/Not Resolved]
  - Osteoarthritis [Unknown]
  - Central nervous system lesion [Unknown]
  - Osteochondrosis [Unknown]
  - Macule [Not Recovered/Not Resolved]
  - Blood creatinine increased [Unknown]
  - Aspartate aminotransferase [Unknown]
  - White blood cell count abnormal [Unknown]

NARRATIVE: CASE EVENT DATE: 20230601
